FAERS Safety Report 6873547-6 (Version None)
Quarter: 2010Q3

REPORT INFORMATION
  Report Type: 
  Country: None (occurrence: None)
  Receive Date: 20100723
  Receipt Date: 20090304
  Transmission Date: 20110219
  Serious: Yes (Death)
  Sender: FDA-Public Use
  Company Number: US-PFIZER INC-2009160168

PATIENT
  Sex: Male
  Weight: 80.272 kg

DRUGS (13)
  1. CHANTIX [Suspect]
     Indication: SMOKING CESSATION THERAPY
     Dosage: UNK
     Route: 048
     Dates: start: 20070315
  2. ALL OTHER THERAPEUTIC PRODUCTS [Concomitant]
     Indication: DEPRESSION
     Dosage: UNK
  3. VYTORIN [Concomitant]
     Dosage: 10/20 ONE AT BEDTIME
     Dates: start: 20060620
  4. FIORINAL [Concomitant]
     Dosage: UNK
     Dates: start: 20070807
  5. LORAZEPAM [Concomitant]
     Dosage: 2 MG, 2X/DAY
     Dates: start: 20070226
  6. VIAGRA [Concomitant]
     Dosage: UNK
     Dates: start: 20061208
  7. PLAVIX [Concomitant]
     Dosage: 75 MG, 1X/DAY
     Dates: start: 20061009
  8. LOTENSIN [Concomitant]
     Dosage: 10 MG, 1X/DAY
     Dates: start: 20061009
  9. CYMBALTA [Concomitant]
     Dosage: 60 MG, 1X/DAY
     Dates: start: 20061009
  10. COREG [Concomitant]
     Dosage: 12.5 MG, 2X/DAY
     Dates: start: 20061009
  11. COUMADIN [Concomitant]
     Dosage: UNK
     Dates: start: 20060620
  12. LOVAZA [Concomitant]
     Dosage: UNK
     Dates: start: 20030722
  13. VITAMINS [Concomitant]
     Dates: start: 20030722

REACTIONS (1)
  - COMPLETED SUICIDE [None]
